FAERS Safety Report 5819488-4 (Version None)
Quarter: 2008Q3

REPORT INFORMATION
  Report Type: 
  Country: None (occurrence: None)
  Receive Date: 20080723
  Receipt Date: 20080715
  Transmission Date: 20090109
  Serious: Yes (Hospitalization, Other)
  Sender: FDA-Public Use
  Company Number: BR-ASTRAZENECA-2008UW14252

PATIENT
  Age: 77 Year
  Sex: Male
  Weight: 73 kg

DRUGS (4)
  1. ZOLADEX [Suspect]
     Indication: PROSTATE CANCER
     Route: 058
     Dates: start: 20030101
  2. OMEPRAZOLE [Suspect]
     Indication: HIATUS HERNIA
     Route: 048
     Dates: start: 20071101
  3. CIPROFLOXACIN [Concomitant]
     Indication: URINARY TRACT INFECTION
     Route: 048
     Dates: start: 20000101
  4. CAPTOPRIL [Concomitant]
     Indication: HYPERTENSION
     Route: 048
     Dates: start: 20030101

REACTIONS (7)
  - CEREBROVASCULAR ACCIDENT [None]
  - DEMENTIA ALZHEIMER'S TYPE [None]
  - HAEMATOCHEZIA [None]
  - HAEMORRHAGE [None]
  - HIATUS HERNIA [None]
  - NERVOUSNESS [None]
  - URINARY TRACT INFECTION [None]
